FAERS Safety Report 11241768 (Version 4)
Quarter: 2015Q4

REPORT INFORMATION
  Report Type: Spontaneous
  Country: FR (occurrence: FR)
  Receive Date: 20150706
  Receipt Date: 20151125
  Transmission Date: 20160304
  Serious: Yes (Hospitalization, Congenital Anomaly)
  Sender: FDA-Public Use
  Company Number: FR-ABBVIE-15P-056-1421545-00

PATIENT
  Age: 0 Year
  Sex: Female

DRUGS (1)
  1. DEPAKINE [Suspect]
     Active Substance: VALPROATE SODIUM
     Indication: MATERNAL EXPOSURE TIMING UNSPECIFIED
     Route: 064

REACTIONS (37)
  - Intentional self-injury [Unknown]
  - Pyrexia [Unknown]
  - Disturbance in attention [Unknown]
  - Dacryostenosis congenital [Unknown]
  - Enuresis [Unknown]
  - Learning disorder [Unknown]
  - Myopia [Unknown]
  - Dysmorphism [Unknown]
  - Fatigue [Unknown]
  - Developmental hip dysplasia [Unknown]
  - Tonsillitis [Unknown]
  - Hypotonia [Unknown]
  - Nasopharyngitis [Unknown]
  - Constipation [Unknown]
  - Vomiting [Unknown]
  - Dysmorphism [Unknown]
  - Autism spectrum disorder [Unknown]
  - Visual impairment [Unknown]
  - Astigmatism [Unknown]
  - Coordination abnormal [Unknown]
  - Language disorder [Not Recovered/Not Resolved]
  - Abnormal behaviour [Unknown]
  - Aggression [Unknown]
  - Talipes [Unknown]
  - Binocular eye movement disorder [Unknown]
  - Urinary tract infection [Unknown]
  - Weight gain poor [Unknown]
  - Foetal exposure during pregnancy [Not Recovered/Not Resolved]
  - Cognitive disorder [Not Recovered/Not Resolved]
  - Ear infection [Unknown]
  - Speech disorder developmental [Unknown]
  - Balance disorder [Unknown]
  - Developmental delay [Not Recovered/Not Resolved]
  - Ill-defined disorder [Unknown]
  - Laryngitis [Unknown]
  - Conjunctivitis [Unknown]
  - Jaundice neonatal [Unknown]

NARRATIVE: CASE EVENT DATE: 2003
